FAERS Safety Report 10537567 (Version 1)
Quarter: 2014Q4

REPORT INFORMATION
  Report Type: Spontaneous
  Country: US (occurrence: None)
  Receive Date: 20141022
  Receipt Date: 20141022
  Transmission Date: 20150529
  Serious: No
  Sender: FDA-Public Use
  Company Number: None

PATIENT
  Age: 36 Year
  Sex: Male
  Weight: 114 kg

DRUGS (1)
  1. VANCO 2.4GR [Suspect]
     Active Substance: VANCOMYCIN
     Indication: ANTI-INFECTIVE THERAPY
     Dates: start: 20141020, end: 20141020

REACTIONS (3)
  - Nausea [None]
  - Chest pain [None]
  - Incorrect drug administration duration [None]

NARRATIVE: CASE EVENT DATE: 20141021
